FAERS Safety Report 6095052-X (Version None)
Quarter: 2009Q1

REPORT INFORMATION
  Report Type: 
  Country: None (occurrence: None)
  Receive Date: 20090227
  Receipt Date: 20080108
  Transmission Date: 20090719
  Serious: No
  Sender: FDA-Public Use
  Company Number: A0701976A

PATIENT
  Age: 22 Year
  Sex: Female

DRUGS (5)
  1. LAMICTAL [Suspect]
     Dosage: 150MG PER DAY
     Route: 048
     Dates: start: 20040101
  2. LEXAPRO [Concomitant]
  3. METFORMIN [Concomitant]
  4. NORTREL 7/7/7 [Concomitant]
  5. CONCERTA [Concomitant]

REACTIONS (3)
  - ABDOMINAL PAIN UPPER [None]
  - MIGRAINE [None]
  - NAUSEA [None]
